FAERS Safety Report 4822721-9 (Version None)
Quarter: 2005Q4

REPORT INFORMATION
  Report Type: 
  Country: None (occurrence: None)
  Receive Date: 20051104
  Receipt Date: 20051101
  Transmission Date: 20060501
  Serious: Yes (Hospitalization)
  Sender: FDA-Public Use
  Company Number: CIP05002532

PATIENT
  Sex: Female

DRUGS (1)
  1. ACTONEL [Suspect]
     Dosage: ONCE WEEKLY, ORAL
     Route: 048
     Dates: start: 20051001

REACTIONS (3)
  - DIZZINESS [None]
  - DYSPHAGIA [None]
  - LOSS OF CONSCIOUSNESS [None]
